FAERS Safety Report 10052985 (Version 2)
Quarter: 2014Q2

REPORT INFORMATION
  Report Type: Spontaneous
  Country: AU (occurrence: AU)
  Receive Date: 20140402
  Receipt Date: 20140402
  Transmission Date: 20141212
  Serious: Yes (Hospitalization, Other)
  Sender: FDA-Public Use
  Company Number: AU-JNJFOC-20140314643

PATIENT
  Age: 89 Year
  Sex: Female

DRUGS (13)
  1. XARELTO [Suspect]
     Indication: CEREBROVASCULAR ACCIDENT PROPHYLAXIS
     Route: 048
     Dates: start: 20140305
  2. XARELTO [Suspect]
     Indication: ATRIAL FIBRILLATION
     Route: 048
     Dates: start: 20140305
  3. SOMAC [Concomitant]
     Indication: GASTROOESOPHAGEAL REFLUX DISEASE
     Route: 065
     Dates: start: 20140211
  4. ATACAND [Concomitant]
     Dosage: MORNING
     Route: 065
     Dates: start: 20131029
  5. CRESTOR [Concomitant]
     Dosage: EVENING
     Route: 065
     Dates: start: 20140211
  6. FUROSEMIDE [Concomitant]
     Route: 065
     Dates: start: 20140211
  7. GLYCERYL TRINITRATE [Concomitant]
     Dosage: 400 MCG/DOSE/1-2 PUFFS
     Route: 065
     Dates: start: 20140305
  8. ISOPTIN [Concomitant]
     Indication: HYPERTENSION
     Dosage: 180 MG/BD,M.D.U
     Route: 065
     Dates: start: 20131211
  9. ISOSORBIDE MONONITRATE [Concomitant]
     Dosage: MORNING
     Route: 065
     Dates: start: 20140211
  10. ALPRAZOLAM [Concomitant]
     Dosage: 1 TAB
     Route: 065
     Dates: start: 20140211
  11. MIRTAZON [Concomitant]
     Route: 065
     Dates: start: 20140211
  12. PANADOL OSTEO [Concomitant]
     Dosage: 665 MG (2 TID, PRN)
     Route: 065
     Dates: start: 20140211
  13. SERETIDE [Concomitant]
     Dosage: 1 PUFF(S),QD (500 MCG -50 MCG)
     Route: 065
     Dates: start: 20131015

REACTIONS (3)
  - Melaena [Unknown]
  - Iron deficiency anaemia [Unknown]
  - Bowel movement irregularity [Unknown]
